FAERS Safety Report 9885590 (Version 2)
Quarter: 2014Q1

REPORT INFORMATION
  Report Type: Report from Study
  Country: GB (occurrence: GB)
  Receive Date: 20140210
  Receipt Date: 20140210
  Transmission Date: 20141002
  Serious: Yes (Death, Hospitalization)
  Sender: FDA-Public Use
  Company Number: GB-INCYTE CORPORATION-2013IN002891

PATIENT
  Age: 73 Year
  Sex: Male

DRUGS (7)
  1. INC424 [Suspect]
     Indication: MYELOFIBROSIS
     Dosage: 20 MG, BID
     Route: 048
     Dates: start: 20130727, end: 20131106
  2. AZTREONAM [Concomitant]
  3. CASPOFUNGIN [Concomitant]
  4. GENTAMYCINE [Concomitant]
  5. MEROPENEM [Concomitant]
  6. SEPTRIN [Concomitant]
  7. COTRIMOXAZOLE [Concomitant]

REACTIONS (4)
  - Neutropenia [Fatal]
  - Pancytopenia [Fatal]
  - Sepsis [Fatal]
  - Renal failure acute [Recovered/Resolved]
